FAERS Safety Report 23481445 (Version 1)
Quarter: 2024Q1

REPORT INFORMATION
  Report Type: Spontaneous
  Country: FR (occurrence: FR)
  Receive Date: 20240205
  Receipt Date: 20240205
  Transmission Date: 20240410
  Serious: Yes (Death, Other)
  Sender: FDA-Public Use
  Company Number: None

PATIENT
  Age: 81 Year
  Sex: Male

DRUGS (3)
  1. METRONIDAZOLE [Suspect]
     Active Substance: METRONIDAZOLE
     Indication: Infection
     Route: 065
     Dates: start: 20231210, end: 20231218
  2. CEFOTAXIME SODIUM [Suspect]
     Active Substance: CEFOTAXIME SODIUM
     Indication: Infection
     Dosage: AT AN UNSPECIFIED DOSE AND FREQUENCY (ROUTE OF ADMINISTRATION (FREE TEXT): PARENTERAL)
     Route: 050
     Dates: start: 20231210, end: 20231210
  3. CEFTRIAXONE SODIUM [Suspect]
     Active Substance: CEFTRIAXONE SODIUM
     Indication: Infection
     Dosage: AT AN UNSPECIFIED DOSE AND FREQUENCY (ROUTE OF ADMINISTRATION (FREE TEXT): PARENTERAL)
     Route: 050
     Dates: start: 20231208, end: 20231218

REACTIONS (1)
  - Toxic epidermal necrolysis [Fatal]

NARRATIVE: CASE EVENT DATE: 20231223
